FAERS Safety Report 6803815-5 (Version None)
Quarter: 2010Q2

REPORT INFORMATION
  Report Type: 
  Country: None (occurrence: None)
  Receive Date: 20100628
  Receipt Date: 20100625
  Transmission Date: 20101027
  Serious: Yes (Hospitalization)
  Sender: FDA-Public Use
  Company Number: FR-ABBOTT-10P-056-0641706-00

PATIENT
  Sex: Female

DRUGS (5)
  1. SEVOFLURANE [Suspect]
     Indication: ANAESTHESIA
     Route: 042
     Dates: start: 20100311, end: 20100311
  2. PERFALGAN [Suspect]
     Indication: PAIN
     Route: 042
     Dates: start: 20100311, end: 20100311
  3. SUFENTANIL [Suspect]
     Indication: ANAESTHESIA
     Route: 042
     Dates: start: 20100311, end: 20100311
  4. NEOFAM [Suspect]
     Indication: PAIN
     Route: 042
     Dates: start: 20100311, end: 20100311
  5. PROPOFOL [Suspect]
     Indication: ANAESTHESIA
     Route: 042
     Dates: start: 20100311, end: 20100311

REACTIONS (3)
  - BRADYCARDIA [None]
  - HYPOTENSION [None]
  - RASH [None]
